FAERS Safety Report 8260867-6 (Version None)
Quarter: 2012Q2

REPORT INFORMATION
  Report Type: 
  Country: None (occurrence: None)
  Receive Date: 20120402
  Receipt Date: 20120323
  Transmission Date: 20120825
  Serious: Yes (Other)
  Sender: FDA-Public Use
  Company Number: 2012-029248

PATIENT
  Age: 85 Year
  Sex: Male

DRUGS (1)
  1. ASPIRIN [Suspect]
     Dosage: 325 MG, QD, ORAL
     Route: 048
     Dates: end: 20120301

REACTIONS (4)
  - ABASIA [None]
  - ABDOMINAL PAIN UPPER [None]
  - ABDOMINAL DISCOMFORT [None]
  - GASTRIC HAEMORRHAGE [None]
